FAERS Safety Report 6113652-5 (Version None)
Quarter: 2009Q1

REPORT INFORMATION
  Report Type: 
  Country: None (occurrence: None)
  Receive Date: 20090312
  Receipt Date: 20090302
  Transmission Date: 20090719
  Serious: Yes (Hospitalization)
  Sender: FDA-Public Use
  Company Number: PHHY2009AU03282

PATIENT
  Age: 55 Year
  Sex: Female

DRUGS (3)
  1. VOLTAREN [Suspect]
     Indication: ANTIINFLAMMATORY THERAPY
     Dosage: 50 MG, TID
     Route: 048
     Dates: end: 20090127
  2. VOLTAREN [Suspect]
     Indication: BACK PAIN
  3. MICARDIS [Suspect]
     Dosage: 40 MG DAILY

REACTIONS (5)
  - ANGIOEDEMA [None]
  - EXPIRED DRUG ADMINISTERED [None]
  - NAUSEA [None]
  - RASH [None]
  - VISION BLURRED [None]
